FAERS Safety Report 15971188 (Version 1)
Quarter: 2019Q1

REPORT INFORMATION
  Report Type: Report from Study
  Country: US (occurrence: US)
  Receive Date: 20190215
  Receipt Date: 20190215
  Transmission Date: 20190418
  Serious: No
  Sender: FDA-Public Use
  Company Number: US-AMAG PHARMACEUTICALS, INC.-AMAG201806315

PATIENT
  Age: 36 Year
  Sex: Female
  Weight: 67.57 kg

DRUGS (3)
  1. MAKENA [Suspect]
     Active Substance: HYDROXYPROGESTERONE CAPROATE
     Indication: PREMATURE DELIVERY
     Dosage: 250 MG/ML, WEEKLY
     Route: 058
     Dates: start: 20180913, end: 20181219
  2. PROCARDIA [Concomitant]
     Active Substance: NIFEDIPINE
     Indication: PREMATURE LABOUR
     Dosage: 10 MG, Q6H
     Route: 065
     Dates: start: 20181105
  3. PRENATAL VITAMINS [Concomitant]
     Active Substance: VITAMINS
     Indication: PRODUCT USED FOR UNKNOWN INDICATION
     Dosage: 1 TABS, QD
     Route: 048
     Dates: start: 20180517

REACTIONS (3)
  - Rash pruritic [Recovered/Resolved]
  - Injection site pain [Recovered/Resolved]
  - Product dose omission [Unknown]

NARRATIVE: CASE EVENT DATE: 20180928
